FAERS Safety Report 7571532-2 (Version None)
Quarter: 2011Q2

REPORT INFORMATION
  Report Type: 
  Country: None (occurrence: None)
  Receive Date: 20110624
  Receipt Date: 20110614
  Transmission Date: 20111010
  Serious: Yes (Hospitalization)
  Sender: FDA-Public Use
  Company Number: US-JNJFOC-20110607649

PATIENT
  Age: 81 Year
  Sex: Male
  Weight: 81.65 kg

DRUGS (4)
  1. EXTRA STRENGTH TYLENOL PM [Suspect]
     Indication: INSOMNIA
     Route: 048
     Dates: start: 20090101, end: 20110101
  2. EXTRA STRENGTH TYLENOL PM [Suspect]
     Indication: PAIN
     Route: 048
     Dates: start: 20090101, end: 20110101
  3. TYLENOL-500 [Suspect]
     Indication: PAIN
     Dosage: SEVERAL TIMES DURING THE DAY ON A DAILY BASIS
     Route: 048
     Dates: start: 20090101, end: 20110101
  4. TYLENOL-500 [Suspect]
     Indication: INSOMNIA
     Dosage: SEVERAL TIMES DURING THE DAY ON A DAILY BASIS
     Route: 048
     Dates: start: 20090101, end: 20110101

REACTIONS (3)
  - PRODUCT QUALITY ISSUE [None]
  - CEREBROVASCULAR ACCIDENT [None]
  - INCORRECT DRUG ADMINISTRATION DURATION [None]
